FAERS Safety Report 16469596 (Version 1)
Quarter: 2019Q2

REPORT INFORMATION
  Report Type: Spontaneous
  Country: US (occurrence: US)
  Receive Date: 20190514
  Receipt Date: 20190514
  Transmission Date: 20190711
  Serious: No
  Sender: FDA-Public Use
  Company Number: None

PATIENT
  Age: 65 Year
  Weight: 74.3 kg

DRUGS (6)
  1. ADVAIR HFA [Concomitant]
     Active Substance: FLUTICASONE PROPIONATE\SALMETEROL XINAFOATE
  2. XOLAIR [Suspect]
     Active Substance: OMALIZUMAB
  3. CITALOPRAM [Concomitant]
     Active Substance: CITALOPRAM HYDROBROMIDE
  4. IRON [Concomitant]
     Active Substance: IRON
  5. CALCIUM [Concomitant]
     Active Substance: CALCIUM
  6. ALBUTEROL. [Concomitant]
     Active Substance: ALBUTEROL

REACTIONS (14)
  - Loss of personal independence in daily activities [None]
  - Cognitive disorder [None]
  - Irritability [None]
  - Pain [None]
  - Speech disorder [None]
  - Anger [None]
  - Asthenia [None]
  - Suicidal ideation [None]
  - Memory impairment [None]
  - Family stress [None]
  - Frustration tolerance decreased [None]
  - Homicidal ideation [None]
  - Fatigue [None]
  - Depression [None]
